FAERS Safety Report 18359354 (Version 2)
Quarter: 2020Q4

REPORT INFORMATION
  Report Type: Report from Study
  Country: GB (occurrence: GB)
  Receive Date: 20201008
  Receipt Date: 20201022
  Transmission Date: 20210114
  Serious: Yes (Other)
  Sender: FDA-Public Use
  Company Number: NVSC2020GB211425

PATIENT
  Sex: Female

DRUGS (2)
  1. HYRIMOZ [Suspect]
     Active Substance: ADALIMUMAB-ADAZ
     Indication: PSORIATIC ARTHROPATHY
     Dosage: 40 MG, Q2W
     Route: 058
     Dates: start: 20200630
  2. HYRIMOZ [Suspect]
     Active Substance: ADALIMUMAB-ADAZ
     Indication: RHEUMATOID ARTHRITIS
     Dosage: UNK (40MG/0.8M, FORTNIGHTLY,AS DIRECTED)
     Route: 065
     Dates: start: 20200616

REACTIONS (6)
  - Malaise [Unknown]
  - Lower respiratory tract infection [Recovered/Resolved]
  - Product dose omission issue [Unknown]
  - Rhinorrhoea [Unknown]
  - Suspected COVID-19 [Unknown]
  - Headache [Unknown]
